FAERS Safety Report 6436668-8 (Version None)
Quarter: 2009Q4

REPORT INFORMATION
  Report Type: 
  Country: None (occurrence: None)
  Receive Date: 20091111
  Receipt Date: 20091030
  Transmission Date: 20100525
  Serious: Yes (Other)
  Sender: FDA-Public Use
  Company Number: AU-PFIZER INC-2009291364

PATIENT
  Sex: Female

DRUGS (3)
  1. LYRICA [Suspect]
     Indication: SPINAL OSTEOARTHRITIS
     Dosage: UNK
  2. FENTANYL [Concomitant]
  3. ACETAMINOPHEN W/ CODEINE [Concomitant]

REACTIONS (1)
  - BRADYARRHYTHMIA [None]
